FAERS Safety Report 6431620-0 (Version None)
Quarter: 2009Q4

REPORT INFORMATION
  Report Type: 
  Country: None (occurrence: None)
  Receive Date: 20091106
  Receipt Date: 20091026
  Transmission Date: 20100525
  Serious: Yes (Hospitalization)
  Sender: FDA-Public Use
  Company Number: US-ELI_LILLY_AND_COMPANY-US200910007249

PATIENT
  Sex: Male

DRUGS (3)
  1. CYMBALTA [Suspect]
     Indication: ANXIETY
     Dosage: 60 MG, UNK
     Dates: start: 20090401
  2. MOTRIN [Concomitant]
     Dosage: 800 MG, UNK
  3. TYLENOL [Concomitant]
     Dosage: 1 D/F, AS NEEDED

REACTIONS (4)
  - MUSCLE ENZYME INCREASED [None]
  - MUSCULAR WEAKNESS [None]
  - PYREXIA [None]
  - VIRAL INFECTION [None]
